FAERS Safety Report 5806674-2 (Version None)
Quarter: 2008Q3

REPORT INFORMATION
  Report Type: 
  Country: None (occurrence: None)
  Receive Date: 20080710
  Receipt Date: 20080703
  Transmission Date: 20090109
  Serious: Yes (Hospitalization)
  Sender: FDA-Public Use
  Company Number: NZ-MERCK-0805NZL00011

PATIENT
  Age: 74 Year
  Sex: Female

DRUGS (7)
  1. COSOPT [Suspect]
     Indication: GLAUCOMA
     Route: 047
     Dates: start: 20030101
  2. PARADEX (ACETAMINOPHEN (+) PROPOXYPHENE HYDROCHLORIDE) [Concomitant]
     Indication: ARTHRALGIA
     Route: 048
  3. IMOVANE [Concomitant]
     Indication: INSOMNIA
     Route: 048
  4. CHOLECALCIFEROL [Concomitant]
     Indication: OSTEOPOROSIS
     Route: 048
  5. BENDROFLUMETHIAZIDE [Concomitant]
     Indication: FLUID RETENTION
     Route: 048
  6. THYROXIN [Concomitant]
     Indication: HYPOTHYROIDISM
     Route: 048
  7. METOPROLOL SUCCINATE [Concomitant]
     Indication: HYPERTENSION
     Route: 048

REACTIONS (2)
  - OSTEOARTHRITIS [None]
  - SKIN IRRITATION [None]
